FAERS Safety Report 6267201-1 (Version None)
Quarter: 2009Q3

REPORT INFORMATION
  Report Type: 
  Country: None (occurrence: None)
  Receive Date: 20090714
  Receipt Date: 20090618
  Transmission Date: 20100115
  Serious: No
  Sender: FDA-Public Use
  Company Number: US-BAYER-200911870BCC

PATIENT
  Sex: Female

DRUGS (2)
  1. ALEVE [Suspect]
     Indication: PAIN IN EXTREMITY
     Dosage: UNIT DOSE: 220 MG
     Route: 048
     Dates: start: 20090618
  2. UNKNOWN PAIN MEDICATION [Concomitant]
     Indication: PAIN
     Route: 065

REACTIONS (1)
  - PAIN IN EXTREMITY [None]
